FAERS Safety Report 12253883 (Version 1)
Quarter: 2016Q2

REPORT INFORMATION
  Report Type: Spontaneous
  Country: AU (occurrence: AU)
  Receive Date: 20160411
  Receipt Date: 20160411
  Transmission Date: 20160815
  Serious: Yes (Other)
  Sender: FDA-Public Use
  Company Number: AU-IPSEN BIOPHARMACEUTICALS, INC.-2016-03002

PATIENT

DRUGS (4)
  1. ANTICHOLINERGIC MEDICATIONS [Suspect]
     Active Substance: UNSPECIFIED INGREDIENT
     Indication: HYPERTONIC BLADDER
     Route: 048
  2. BOTULINUM TOXIN TYPE A NOS [Suspect]
     Active Substance: BOTULINUM TOXIN TYPE A
     Indication: HYPERTONIC BLADDER
     Dosage: 100-400 UNITS
     Route: 065
  3. BOTULINUM TOXIN TYPE A NOS [Suspect]
     Active Substance: BOTULINUM TOXIN TYPE A
     Indication: PRODUCT USE ISSUE
  4. UNSPECIFIED ANTIBIOTIC [Concomitant]
     Active Substance: UNSPECIFIED INGREDIENT
     Indication: PROPHYLAXIS
     Route: 042

REACTIONS (1)
  - Parkinson^s disease [Unknown]
